FAERS Safety Report 8108074-1 (Version None)
Quarter: 2012Q1

REPORT INFORMATION
  Report Type: 
  Country: None (occurrence: None)
  Receive Date: 20120202
  Receipt Date: 20120126
  Transmission Date: 20120608
  Serious: Yes (Other)
  Sender: FDA-Public Use
  Company Number: FR-ALLERGAN-1201262US

PATIENT
  Sex: Female

DRUGS (2)
  1. OZURDEX [Suspect]
     Indication: VASCULAR MALFORMATION PERIPHERAL
     Dosage: 0.7 MG, SINGLE
     Route: 031
     Dates: start: 20111201, end: 20111201
  2. TRIMETHOPRIM [Concomitant]

REACTIONS (4)
  - EYE OPERATION COMPLICATION [None]
  - EYE PAIN [None]
  - EYE HAEMORRHAGE [None]
  - COUGH [None]
